FAERS Safety Report 4785198-8 (Version None)
Quarter: 2005Q3

REPORT INFORMATION
  Report Type: 
  Country: None (occurrence: None)
  Receive Date: 20050930
  Receipt Date: 20050927
  Transmission Date: 20060218
  Serious: Yes (Hospitalization, Other)
  Sender: FDA-Public Use
  Company Number: US-MERCK-0509USA04316

PATIENT
  Age: 76 Year
  Sex: Female

DRUGS (5)
  1. FOSAMAX [Suspect]
     Indication: OSTEOPOROSIS
     Route: 048
     Dates: start: 19960101
  2. FOSAMAX [Suspect]
     Route: 048
     Dates: start: 19980901
  3. FOSAMAX [Suspect]
     Indication: SPINAL FRACTURE
     Route: 048
     Dates: start: 19960101
  4. FOSAMAX [Suspect]
     Route: 048
     Dates: start: 19980901
  5. L-THYROXIN [Concomitant]
     Route: 065

REACTIONS (5)
  - ARRHYTHMIA [None]
  - HEART VALVE CALCIFICATION [None]
  - HYPOTENSION [None]
  - SPINAL FRACTURE [None]
  - UTERINE DISORDER [None]
